FAERS Safety Report 5843797-6 (Version None)
Quarter: 2008Q3

REPORT INFORMATION
  Report Type: 
  Country: None (occurrence: None)
  Receive Date: 20080813
  Receipt Date: 20080730
  Transmission Date: 20090109
  Serious: Yes (Other)
  Sender: FDA-Public Use
  Company Number: PHEH2006US12249

PATIENT
  Sex: Female
  Weight: 107.48 kg

DRUGS (3)
  1. AREDIA [Suspect]
     Indication: BREAST CANCER
     Dosage: UNK
     Dates: start: 20011109, end: 20070103
  2. ZOMETA [Suspect]
     Indication: BREAST CANCER
  3. FEMARA [Concomitant]
     Indication: BREAST CANCER

REACTIONS (10)
  - ANAEMIA [None]
  - ANXIETY [None]
  - CHOLECYSTECTOMY [None]
  - INJURY [None]
  - NEOPLASM MALIGNANT [None]
  - NEUROENDOCRINE CARCINOMA [None]
  - OSTEONECROSIS [None]
  - PAIN [None]
  - PHYSICAL DISABILITY [None]
  - POSITRON EMISSION TOMOGRAM ABNORMAL [None]
